FAERS Safety Report 17555232 (Version 1)
Quarter: 2020Q1

REPORT INFORMATION
  Report Type: Spontaneous
  Country: US (occurrence: US)
  Receive Date: 20200318
  Receipt Date: 20200318
  Transmission Date: 20200409
  Serious: No
  Sender: FDA-Public Use
  Company Number: US-MYLANLABS-2020M1025325

PATIENT
  Sex: Female
  Weight: 64 kg

DRUGS (1)
  1. ESTRADIOL TRANSDERMAL SYSTEM [Suspect]
     Active Substance: ESTRADIOL
     Indication: MENOPAUSAL SYMPTOMS
     Dosage: 0.1 MILLIGRAM, QD
     Route: 062
     Dates: start: 201911, end: 20191231

REACTIONS (2)
  - Product adhesion issue [Recovered/Resolved]
  - Drug ineffective [Recovered/Resolved]
